FAERS Safety Report 4716675-3 (Version None)
Quarter: 2005Q3

REPORT INFORMATION
  Report Type: 
  Country: None (occurrence: None)
  Receive Date: 20050719
  Receipt Date: 20050707
  Transmission Date: 20060218
  Serious: Yes (Hospitalization)
  Sender: FDA-Public Use
  Company Number: BE-BRISTOL-MYERS SQUIBB COMPANY-13030861

PATIENT
  Age: 58 Year
  Sex: Female

DRUGS (3)
  1. COAPROVEL [Suspect]
     Indication: HYPERTENSION
  2. EMCONCOR [Concomitant]
  3. AMARYL [Concomitant]
     Indication: DIABETES MELLITUS

REACTIONS (6)
  - DISCOMFORT [None]
  - DRY MOUTH [None]
  - HYPERAESTHESIA [None]
  - SKIN TIGHTNESS [None]
  - SPEECH DISORDER [None]
  - SWOLLEN TONGUE [None]
